FAERS Safety Report 5467966-2 (Version None)
Quarter: 2007Q3

REPORT INFORMATION
  Report Type: 
  Country: None (occurrence: None)
  Receive Date: 20070925
  Receipt Date: 20070925
  Transmission Date: 20080115
  Serious: No
  Sender: FDA-Public Use
  Company Number: None

PATIENT
  Sex: Female

DRUGS (1)
  1. LYRICA [Suspect]
     Indication: NEURALGIA
     Dosage: 75 MG BID PO
     Route: 048
     Dates: start: 20070706, end: 20070710

REACTIONS (2)
  - ANGER [None]
  - EMOTIONAL DISTRESS [None]
